FAERS Safety Report 10711976 (Version 1)
Quarter: 2015Q1

REPORT INFORMATION
  Report Type: Spontaneous
  Country: US (occurrence: US)
  Receive Date: 20150114
  Receipt Date: 20150114
  Transmission Date: 20150721
  Serious: No
  Sender: FDA-Public Use
  Company Number: US-ELI_LILLY_AND_COMPANY-US201412010411

PATIENT
  Sex: Female

DRUGS (3)
  1. HUMALOG [Suspect]
     Active Substance: INSULIN LISPRO
     Indication: TYPE 2 DIABETES MELLITUS
     Dosage: 14 U, TID
     Route: 065
  2. LANTUS [Concomitant]
     Active Substance: INSULIN GLARGINE
     Dosage: 30 U, EACH EVENING
  3. LANTUS [Concomitant]
     Active Substance: INSULIN GLARGINE
     Dosage: 20 U, EACH MORNING

REACTIONS (2)
  - Cataract [Unknown]
  - Visual impairment [Unknown]
